FAERS Safety Report 4339875-3 (Version None)
Quarter: 2004Q2

REPORT INFORMATION
  Report Type: 
  Country: None (occurrence: None)
  Receive Date: 20040412
  Receipt Date: 20040404
  Transmission Date: 20050107
  Serious: Yes (Death, Hospitalization)
  Sender: FDA-Public Use
  Company Number: 04P-056-0255703-00

PATIENT
  Age: 43 Year
  Sex: Female

DRUGS (6)
  1. VALPROATE SODIUM [Suspect]
     Indication: CONVULSION
     Dosage: SEE IMAGE
     Route: 048
     Dates: start: 20030706, end: 20040130
  2. VALPROATE SODIUM [Suspect]
     Indication: CONVULSION
     Dosage: SEE IMAGE
     Route: 048
     Dates: start: 20040401, end: 20040401
  3. CLOBAZAM [Concomitant]
  4. OLANZAPINE [Concomitant]
  5. TOPIRMATE [Concomitant]
  6. CLONAZEPAM [Concomitant]

REACTIONS (4)
  - MEGAKARYOCYTES ABNORMAL [None]
  - OVERDOSE [None]
  - SEPSIS [None]
  - THROMBOCYTOPENIA [None]
